FAERS Safety Report 7285187-8 (Version None)
Quarter: 2011Q1

REPORT INFORMATION
  Report Type: 
  Country: None (occurrence: None)
  Receive Date: 20110210
  Receipt Date: 20110207
  Transmission Date: 20110831
  Serious: Yes (Death, Life-Threatening, Hospitalization)
  Sender: FDA-Public Use
  Company Number: NL-MEDIMMUNE-MEDI-0011821

PATIENT
  Sex: Male
  Weight: 7 kg

DRUGS (2)
  1. SYNAGIS [Suspect]
     Route: 051
     Dates: start: 20101112, end: 20101112
  2. SYNAGIS [Suspect]
     Route: 051
     Dates: start: 20101015, end: 20101015

REACTIONS (1)
  - CARDIAC ARREST [None]
